FAERS Safety Report 4473774-1 (Version None)
Quarter: 2004Q3

REPORT INFORMATION
  Report Type: 
  Country: None (occurrence: None)
  Receive Date: 20040909
  Receipt Date: 20040526
  Transmission Date: 20050211
  Serious: No
  Sender: FDA-Public Use
  Company Number: A03200401716

PATIENT
  Age: 68 Year
  Sex: Male
  Weight: 67.586 kg

DRUGS (9)
  1. ELOXATIN [Suspect]
     Indication: COLORECTAL CANCER
     Dosage: 112 MG OTHER - INTRAVENOUS NOS
     Route: 042
     Dates: start: 20040419, end: 20040419
  2. LEUCOVORIN CALCIUM [Concomitant]
  3. DOLASETRON MESILATE [Concomitant]
  4. DEXAMETHASONE [Concomitant]
  5. OMEPRAZOLE [Concomitant]
  6. TRAZODONE HCL [Concomitant]
  7. HYDROCHLOROTHIAZIDE [Concomitant]
  8. METOPROLOL SUCCINATE [Concomitant]
  9. FLUOROURACIL [Concomitant]

REACTIONS (1)
  - TINNITUS [None]
